FAERS Safety Report 4338243-8 (Version None)
Quarter: 2004Q2

REPORT INFORMATION
  Report Type: 
  Country: None (occurrence: None)
  Receive Date: 20040409
  Receipt Date: 20040330
  Transmission Date: 20050107
  Serious: Yes (Hospitalization)
  Sender: FDA-Public Use
  Company Number: GB-JNJFOC-20040306365

PATIENT
  Age: 74 Year
  Sex: Female

DRUGS (6)
  1. REMICADE [Suspect]
     Indication: RHEUMATOID ARTHRITIS
     Dosage: 150 MG, INTRAVENOUS
     Route: 042
     Dates: start: 20020418
  2. LEFLUNOMIDE (LEFLUNOMIDE) [Concomitant]
  3. HUMAN INSULIN (INSULIN HUMAN) [Concomitant]
  4. TEMAZEPAM [Concomitant]
  5. PROXAMOL (APOREX) [Concomitant]
  6. METOCLOPRAMIDE [Concomitant]

REACTIONS (2)
  - FALL [None]
  - FEMUR FRACTURE [None]
